FAERS Safety Report 4521244-4 (Version None)
Quarter: 2004Q4

REPORT INFORMATION
  Report Type: 
  Country: None (occurrence: None)
  Receive Date: 20041208
  Receipt Date: 20041125
  Transmission Date: 20050328
  Serious: Yes (Death)
  Sender: FDA-Public Use
  Company Number: RO-SOLVAY-00204004235

PATIENT
  Age: 25133 Day
  Sex: Male
  Weight: 72 kg

DRUGS (5)
  1. METOPROLOL [Concomitant]
     Indication: ILL-DEFINED DISORDER
     Dosage: DAILY DOSE:  UNKNOWN
     Route: 065
     Dates: start: 20030429, end: 20040416
  2. BLINDED THERAPY (PERINDOPRIL VS PLACEBO) [Suspect]
     Indication: CORONARY ARTERY DISEASE
     Dosage: DAILY DOSE: 8 MILLIGRAM(S)
     Route: 048
     Dates: start: 20030508, end: 20040416
  3. PREDUCTAL [Concomitant]
     Indication: ILL-DEFINED DISORDER
     Dosage: DAILY DOSE:  UNKNOWN
     Route: 048
     Dates: start: 20030429, end: 20040416
  4. ASPIRIN [Concomitant]
     Indication: ILL-DEFINED DISORDER
     Dosage: DAILY DOSE:  UNKNOWN
     Route: 048
     Dates: start: 20030502, end: 20040416
  5. ATORVASTATIN [Concomitant]
     Indication: ILL-DEFINED DISORDER
     Dosage: DAILY DOSE:  UNKNOWN
     Route: 065
     Dates: start: 20030508, end: 20040416

REACTIONS (1)
  - DEATH [None]
